FAERS Safety Report 8386345-1 (Version None)
Quarter: 2012Q2

REPORT INFORMATION
  Report Type: 
  Country: None (occurrence: None)
  Receive Date: 20120525
  Receipt Date: 20120514
  Transmission Date: 20120825
  Serious: Yes (Other)
  Sender: FDA-Public Use
  Company Number: GB-MYLANLABS-2012S1009867

PATIENT
  Age: 72 Year
  Sex: Female
  Weight: 70.4 kg

DRUGS (23)
  1. ACETAMINOPHEN [Concomitant]
     Indication: PRODUCT USED FOR UNKNOWN INDICATION
  2. TRAMADOL HYDROCHLORIDE [Concomitant]
     Indication: PRODUCT USED FOR UNKNOWN INDICATION
  3. ZUCLOPENTHIXOL DECANOATE [Concomitant]
     Indication: PRODUCT USED FOR UNKNOWN INDICATION
  4. ISOSORBIDE MONONITRATE [Concomitant]
     Indication: PRODUCT USED FOR UNKNOWN INDICATION
  5. SIMVASTATIN [Concomitant]
     Indication: PRODUCT USED FOR UNKNOWN INDICATION
  6. RAMIPRIL [Concomitant]
     Indication: PRODUCT USED FOR UNKNOWN INDICATION
  7. SOLIFENACIN SUCCINATE [Concomitant]
     Indication: PRODUCT USED FOR UNKNOWN INDICATION
  8. AMLODIPINE BESYLATE [Concomitant]
     Indication: PRODUCT USED FOR UNKNOWN INDICATION
  9. INTRASITE GEL [Concomitant]
     Indication: PRODUCT USED FOR UNKNOWN INDICATION
  10. MOVIPREP [Concomitant]
     Indication: PRODUCT USED FOR UNKNOWN INDICATION
  11. VALPROATE SODIUM [Concomitant]
     Indication: PRODUCT USED FOR UNKNOWN INDICATION
  12. TIOTROPIUM BROMIDE [Concomitant]
     Indication: PRODUCT USED FOR UNKNOWN INDICATION
     Route: 055
  13. DOXYCYCLINE [Suspect]
     Indication: URINARY TRACT INFECTION
     Route: 048
     Dates: start: 20120329, end: 20120330
  14. ATENOLOL [Concomitant]
     Indication: PRODUCT USED FOR UNKNOWN INDICATION
  15. MIRTAZAPINE [Concomitant]
     Indication: PRODUCT USED FOR UNKNOWN INDICATION
  16. NICORANDIL [Concomitant]
     Indication: PRODUCT USED FOR UNKNOWN INDICATION
  17. QUININE SULFATE [Concomitant]
     Indication: PRODUCT USED FOR UNKNOWN INDICATION
  18. BUMETANIDE [Concomitant]
     Indication: PRODUCT USED FOR UNKNOWN INDICATION
  19. LEVOTHYROXINE SODIUM [Concomitant]
     Indication: PRODUCT USED FOR UNKNOWN INDICATION
  20. IBUPROFEN [Concomitant]
     Indication: PRODUCT USED FOR UNKNOWN INDICATION
  21. LACRI-LUBE [Concomitant]
     Indication: PRODUCT USED FOR UNKNOWN INDICATION
  22. OMEPRAZOLE [Concomitant]
     Indication: PRODUCT USED FOR UNKNOWN INDICATION
  23. PROCYCLIDINE HYDROCHLORIDE 2MG TAB [Concomitant]
     Indication: PRODUCT USED FOR UNKNOWN INDICATION

REACTIONS (1)
  - SWELLING FACE [None]
